FAERS Safety Report 8426476-0 (Version None)
Quarter: 2012Q2

REPORT INFORMATION
  Report Type: 
  Country: None (occurrence: None)
  Receive Date: 20120323
  Receipt Date: 20110909
  Transmission Date: 20120825
  Serious: Yes (Hospitalization)
  Sender: FDA-Public Use
  Company Number: 163-21880-11080521

PATIENT
  Age: 52 Year
  Sex: Male

DRUGS (9)
  1. LISINOPRIL [Concomitant]
  2. REVLIMID [Suspect]
     Indication: MULTIPLE MYELOMA
     Dosage: 25 MG, X21, PO
     Route: 048
     Dates: start: 20100603
  3. ASPIRIN [Concomitant]
  4. SPIRONOLACTONE [Concomitant]
  5. AMBIEN CR [Concomitant]
  6. AMITRIPTYLINE HCL [Concomitant]
  7. TIZANIDINE HCL (TIZANIDINE HYDROCHLORIDE) [Concomitant]
  8. METOPROLOL TARTRATE [Concomitant]
  9. XANAX [Concomitant]

REACTIONS (1)
  - PNEUMONIA [None]
